FAERS Safety Report 23932029 (Version 9)
Quarter: 2024Q4

REPORT INFORMATION
  Report Type: Report from Study
  Country: CA (occurrence: CA)
  Receive Date: 20240603
  Receipt Date: 20241218
  Transmission Date: 20250114
  Serious: Yes (Hospitalization, Other)
  Sender: AMGEN
  Company Number: CA-AMGEN-CANSL2024104980

PATIENT
  Age: 32 Year
  Sex: Male
  Weight: 105 kg

DRUGS (9)
  1. AVSOLA [Suspect]
     Active Substance: INFLIXIMAB-AXXQ
     Indication: Colitis ulcerative
     Dosage: 500 MILLIGRAM (5MG/KG), X1 WEEK
     Route: 042
     Dates: start: 20240513
  2. AVSOLA [Suspect]
     Active Substance: INFLIXIMAB-AXXQ
     Dosage: 10 MILLIGRAM/KILOGRAM, Q8WK
     Route: 042
  3. AVSOLA [Suspect]
     Active Substance: INFLIXIMAB-AXXQ
     Dosage: 10 MILLIGRAM/KILOGRAM (INCREASE DOSE)
     Route: 042
  4. AVSOLA [Suspect]
     Active Substance: INFLIXIMAB-AXXQ
     Dosage: 10 MILLIGRAM/KILOGRAM (INCREASE DOSE)
     Route: 042
  5. AVSOLA [Suspect]
     Active Substance: INFLIXIMAB-AXXQ
     Dosage: 500 MILLIGRAM
     Route: 042
  6. AVSOLA [Suspect]
     Active Substance: INFLIXIMAB-AXXQ
     Dosage: 10 MILLIGRAM/KILOGRAM, Q8WK
     Route: 042
  7. AVSOLA [Suspect]
     Active Substance: INFLIXIMAB-AXXQ
     Dosage: 5 MILLIGRAM/KILOGRAMWEEKS 0,2 AND 6, Q8WK
     Route: 042
  8. AVSOLA [Suspect]
     Active Substance: INFLIXIMAB-AXXQ
     Dosage: 10 MILLIGRAM/KILOGRAM, Q6WK
     Route: 042
     Dates: start: 20240824
  9. AVSOLA [Suspect]
     Active Substance: INFLIXIMAB-AXXQ
     Dosage: UNK
     Route: 065

REACTIONS (13)
  - Haemorrhage [Recovering/Resolving]
  - Inflammatory marker increased [Recovering/Resolving]
  - Abdominal pain [Recovered/Resolved]
  - Anaemia [Recovering/Resolving]
  - Rectal haemorrhage [Unknown]
  - Pyelonephritis [Unknown]
  - Blood pressure increased [Unknown]
  - Product dose omission issue [Unknown]
  - Off label use [Unknown]
  - Inflammation [Recovering/Resolving]
  - Weight increased [Unknown]
  - Frequent bowel movements [Recovering/Resolving]
  - Urinary tract infection [Unknown]

NARRATIVE: CASE EVENT DATE: 20240101
